FAERS Safety Report 9230751 (Version 2)
Quarter: 2013Q3

REPORT INFORMATION
  Report Type: Spontaneous
  Country: FR (occurrence: FR)
  Receive Date: 20130415
  Receipt Date: 20130722
  Transmission Date: 20140515
  Serious: Yes (Hospitalization)
  Sender: FDA-Public Use
  Company Number: FR-SANOFI-AVENTIS-2013SA037114

PATIENT
  Age: 41 Year
  Sex: Female

DRUGS (7)
  1. LOVENOX [Suspect]
     Indication: THROMBOSIS PROPHYLAXIS
     Route: 058
     Dates: start: 20130208
  2. RIFADINE [Suspect]
     Indication: POST PROCEDURAL INFECTION
     Route: 048
     Dates: start: 20130215, end: 20130227
  3. TAVANIC [Suspect]
     Indication: POST PROCEDURAL INFECTION
     Route: 048
     Dates: start: 20130215, end: 20130227
  4. VANCOMYCINE [Suspect]
     Indication: POST PROCEDURAL INFECTION
     Route: 042
     Dates: start: 20130208, end: 20130213
  5. TAZOCILLINE [Suspect]
     Indication: POST PROCEDURAL INFECTION
     Route: 065
     Dates: start: 20130208, end: 20130213
  6. ORBENINE [Concomitant]
     Dates: start: 20130215
  7. GENTAMICIN [Concomitant]
     Dates: start: 20130215

REACTIONS (1)
  - Drug reaction with eosinophilia and systemic symptoms [Recovered/Resolved]
